FAERS Safety Report 7267825-9 (Version None)
Quarter: 2011Q1

REPORT INFORMATION
  Report Type: 
  Country: None (occurrence: None)
  Receive Date: 20110201
  Receipt Date: 20110121
  Transmission Date: 20110831
  Serious: Yes (Life-Threatening)
  Sender: FDA-Public Use
  Company Number: B0695749A

PATIENT
  Age: 56 Year
  Sex: Female
  Weight: 64 kg

DRUGS (6)
  1. DEXAMETHASONE SODIUM PHOSPHATE [Suspect]
     Route: 042
     Dates: start: 20101222, end: 20101222
  2. CARBOPLATIN + PACLITAXEL [Concomitant]
  3. SEISHOKU [Concomitant]
     Dosage: 100ML PER DAY
     Route: 042
  4. RAMELTEON [Suspect]
     Dosage: .3MG PER DAY
     Route: 042
     Dates: start: 20101222, end: 20101222
  5. VENA [Concomitant]
     Dosage: 10MG PER DAY
     Route: 048
  6. ZANTAC [Suspect]
     Dosage: 50MG PER DAY
     Route: 042
     Dates: start: 20101222, end: 20101222

REACTIONS (10)
  - NAUSEA [None]
  - ANAPHYLACTIC REACTION [None]
  - SHOCK [None]
  - DEPRESSED LEVEL OF CONSCIOUSNESS [None]
  - VOMITING [None]
  - OXYGEN SATURATION DECREASED [None]
  - INCONTINENCE [None]
  - GENERALISED ERYTHEMA [None]
  - BLOOD PRESSURE DECREASED [None]
  - CYANOSIS [None]
